FAERS Safety Report 6268101-3 (Version None)
Quarter: 2009Q3

REPORT INFORMATION
  Report Type: 
  Country: None (occurrence: None)
  Receive Date: 20090715
  Receipt Date: 20090709
  Transmission Date: 20100115
  Serious: Yes (Death, Other)
  Sender: FDA-Public Use
  Company Number: US-BIOGENIDEC-2009BI009817

PATIENT
  Age: 37 Year
  Sex: Female
  Weight: 66 kg

DRUGS (8)
  1. TYSABRI [Suspect]
     Indication: MULTIPLE SCLEROSIS
     Route: 042
     Dates: start: 20061023, end: 20090211
  2. FENTANYL [Concomitant]
  3. OXYCODONE [Concomitant]
  4. AMBIEN [Concomitant]
     Dates: start: 20050101
  5. CLONAZEPAM [Concomitant]
     Dates: start: 20050101
  6. ABILIFY [Concomitant]
     Dates: start: 20090201
  7. WELLBUTRIN [Concomitant]
     Dates: start: 20060101
  8. LAMICTAL [Concomitant]
     Dates: start: 20050101

REACTIONS (7)
  - BIPOLAR DISORDER [None]
  - COGNITIVE DISORDER [None]
  - COMPLETED SUICIDE [None]
  - DEPRESSION [None]
  - MUSCULOSKELETAL DISORDER [None]
  - OSTEONECROSIS [None]
  - PAIN [None]
